FAERS Safety Report 18336703 (Version 13)
Quarter: 2022Q2

REPORT INFORMATION
  Report Type: Spontaneous
  Country: CA (occurrence: CA)
  Receive Date: 20201002
  Receipt Date: 20220604
  Transmission Date: 20220720
  Serious: Yes (Other)
  Sender: FDA-Public Use
  Company Number: CA-CELLTRION INC.-2020CA018262

PATIENT

DRUGS (13)
  1. INFLECTRA [Suspect]
     Active Substance: INFLIXIMAB-DYYB
     Indication: Colitis ulcerative
     Dosage: 1300 MG, EVERY 6 WEEKS
     Route: 042
     Dates: start: 20200626
  2. INFLECTRA [Suspect]
     Active Substance: INFLIXIMAB-DYYB
     Indication: Colitis
     Dosage: 1300 MG, EVERY 6 WEEKS
     Route: 042
     Dates: start: 20200807
  3. INFLECTRA [Suspect]
     Active Substance: INFLIXIMAB-DYYB
     Dosage: 1300 MG, EVERY 6 WEEKS
     Route: 042
     Dates: start: 20200924
  4. INFLECTRA [Suspect]
     Active Substance: INFLIXIMAB-DYYB
     Dosage: 1300 MG, EVERY 6 WEEKS
     Route: 042
     Dates: start: 20201105
  5. INFLECTRA [Suspect]
     Active Substance: INFLIXIMAB-DYYB
     Dosage: 1300 MG, EVERY 6 WEEKS
     Route: 042
     Dates: start: 20210729
  6. INFLECTRA [Suspect]
     Active Substance: INFLIXIMAB-DYYB
     Dosage: 1300 MG, EVERY 6 WEEKS
     Route: 042
     Dates: start: 20210916
  7. INFLECTRA [Suspect]
     Active Substance: INFLIXIMAB-DYYB
     Dosage: 1300 MG, EVERY 6 WEEKS
     Route: 042
     Dates: start: 20211028
  8. INFLECTRA [Suspect]
     Active Substance: INFLIXIMAB-DYYB
     Dosage: 1300 MG, EVERY 6 WEEKS
     Route: 042
     Dates: start: 20220110
  9. INFLECTRA [Suspect]
     Active Substance: INFLIXIMAB-DYYB
     Dosage: 1300 MG, EVERY 6 WEEKS
     Route: 042
     Dates: start: 20220224
  10. INFLECTRA [Suspect]
     Active Substance: INFLIXIMAB-DYYB
     Dosage: 1300 MG, EVERY 6 WEEKS
     Route: 042
     Dates: start: 20220411
  11. INFLECTRA [Suspect]
     Active Substance: INFLIXIMAB-DYYB
     Dosage: 1300 MG, EVERY 6 WEEKS
     Route: 042
     Dates: start: 20220411
  12. INFLECTRA [Suspect]
     Active Substance: INFLIXIMAB-DYYB
     Dosage: 1300 MG, EVERY 6 WEEKS
     Route: 042
     Dates: start: 20220519
  13. IRON [Concomitant]
     Active Substance: IRON
     Dosage: 1 DF

REACTIONS (16)
  - Haemorrhage [Unknown]
  - Atrial flutter [Unknown]
  - Rectal haemorrhage [Not Recovered/Not Resolved]
  - Haemorrhoids [Not Recovered/Not Resolved]
  - Off label use [Unknown]
  - Product use issue [Unknown]
  - Intentional product use issue [Unknown]
  - Inappropriate schedule of product administration [Unknown]
  - Incorrect dose administered [Unknown]
  - Condition aggravated [Unknown]
  - Headache [Recovered/Resolved]
  - Head injury [Unknown]
  - Pallor [Unknown]
  - Vision blurred [Recovered/Resolved]
  - Weight decreased [Unknown]
  - Weight increased [Not Recovered/Not Resolved]

NARRATIVE: CASE EVENT DATE: 20200101
